FAERS Safety Report 7861599-6 (Version None)
Quarter: 2011Q4

REPORT INFORMATION
  Report Type: 
  Country: None (occurrence: None)
  Receive Date: 20111027
  Receipt Date: 20111021
  Transmission Date: 20120403
  Serious: Yes (Other)
  Sender: FDA-Public Use
  Company Number: DK-PFIZER INC-2011256419

PATIENT
  Age: 32 Year
  Sex: Female

DRUGS (2)
  1. ZIPRASIDONE HYDROCHLORIDE [Suspect]
     Dosage: 80 MG DAILY
     Dates: start: 20070101
  2. RISPERDAL [Suspect]

REACTIONS (3)
  - TOURETTE'S DISORDER [None]
  - WEIGHT INCREASED [None]
  - SEDATION [None]
